FAERS Safety Report 9291021 (Version 2)
Quarter: 2013Q2

REPORT INFORMATION
  Report Type: Spontaneous
  Country: US (occurrence: US)
  Receive Date: 20130515
  Receipt Date: 20130530
  Transmission Date: 20140414
  Serious: No
  Sender: FDA-Public Use
  Company Number: US-009507513-1305USA000857

PATIENT
  Sex: Female

DRUGS (2)
  1. DR. SCHOLLS CLEAR AWAY WART REMOVER [Suspect]
     Indication: SKIN PAPILLOMA
     Dosage: UNK, UNKNOWN
     Route: 048
     Dates: start: 2013
  2. FREEZE OFF [Suspect]
     Indication: SKIN PAPILLOMA

REACTIONS (2)
  - Expired drug administered [Unknown]
  - Drug ineffective [Unknown]
